FAERS Safety Report 9032521 (Version 5)
Quarter: 2014Q2

REPORT INFORMATION
  Report Type: Report from Study
  Country: BR (occurrence: BR)
  Receive Date: 20130125
  Receipt Date: 20140527
  Transmission Date: 20141212
  Serious: Yes (Hospitalization, Other)
  Sender: FDA-Public Use
  Company Number: BR-ROCHE-1183532

PATIENT
  Age: 57 Year
  Sex: Female
  Weight: 50 kg

DRUGS (7)
  1. ACTEMRA [Suspect]
     Indication: RHEUMATOID ARTHRITIS
     Route: 042
     Dates: start: 20100801
  2. ACTEMRA [Suspect]
     Dosage: RESUMED
     Route: 042
     Dates: start: 20130203
  3. LOSARTAN [Concomitant]
  4. HYDROXYZINE [Concomitant]
  5. ARAVA [Concomitant]
     Route: 065
  6. PREDNISONE [Concomitant]
     Route: 065
  7. SELOZOK [Concomitant]

REACTIONS (4)
  - Corneal perforation [Recovered/Resolved]
  - Myocardial infarction [Recovered/Resolved]
  - Eye infection [Recovered/Resolved]
  - Drug dose omission [Unknown]
